FAERS Safety Report 20679155 (Version 2)
Quarter: 2023Q1

REPORT INFORMATION
  Report Type: Spontaneous
  Country: None (occurrence: US)
  Receive Date: 20220406
  Receipt Date: 20230317
  Transmission Date: 20230418
  Serious: Yes (Other)
  Sender: FDA-Public Use
  Company Number: US-Imprimis NJOF-2127451

PATIENT
  Sex: Female

DRUGS (1)
  1. PREDNISOLONE ACETATE PF [Suspect]
     Active Substance: PREDNISOLONE ACETATE
     Route: 047
     Dates: start: 20220402

REACTIONS (3)
  - Blood pressure increased [Recovering/Resolving]
  - Chills [Recovering/Resolving]
  - Vision blurred [Recovering/Resolving]
